FAERS Safety Report 4522074-X (Version None)
Quarter: 2004Q4

REPORT INFORMATION
  Report Type: 
  Country: None (occurrence: None)
  Receive Date: 20041206
  Receipt Date: 20041123
  Transmission Date: 20050328
  Serious: Yes (Hospitalization)
  Sender: FDA-Public Use
  Company Number: 2002065173

PATIENT
  Age: 73 Year
  Sex: Female

DRUGS (7)
  1. GEMFIBROZIL [Suspect]
     Indication: HYPERCHOLESTEROLAEMIA
     Dosage: 1200 MG (BID)
  2. ROXITHROMYCIN (ROXITHROMYCIN) [Suspect]
     Indication: UPPER RESPIRATORY TRACT INFECTION
  3. DILTIAZEM [Suspect]
     Indication: ILL-DEFINED DISORDER
  4. SIMVASTATIN [Suspect]
     Indication: HYPERCHOLESTEROLAEMIA
     Dosage: 80 MG (QD)
  5. RAMIPRIL [Concomitant]
  6. CHLOROTHIAZIDE [Concomitant]
  7. ASPIRIN [Concomitant]

REACTIONS (3)
  - DRUG INTERACTION [None]
  - RHABDOMYOLYSIS [None]
  - UPPER RESPIRATORY TRACT INFECTION [None]
